FAERS Safety Report 11983304 (Version 8)
Quarter: 2017Q1

REPORT INFORMATION
  Report Type: Spontaneous
  Country: US (occurrence: US)
  Receive Date: 20160201
  Receipt Date: 20170213
  Transmission Date: 20170428
  Serious: No
  Sender: FDA-Public Use
  Company Number: US-PFIZER INC-2016040133

PATIENT
  Age: 76 Year
  Sex: Female
  Weight: 66.77 kg

DRUGS (6)
  1. IBRANCE [Suspect]
     Active Substance: PALBOCICLIB
     Dosage: 125 MG, CYCLIC (D1-D21 Q28D)
     Route: 048
     Dates: start: 20160909
  2. IBRANCE [Suspect]
     Active Substance: PALBOCICLIB
     Dosage: 125 MG, CYCLIC [DAYS 1-21 Q28 DAYS]
     Route: 048
     Dates: start: 20160109
  3. IBRANCE [Suspect]
     Active Substance: PALBOCICLIB
     Dosage: 125 MG, CYCLIC (125 MG CAPSULES DAYS 1-21 Q 28 DAYS)
     Route: 048
     Dates: start: 20160109
  4. IBRANCE [Suspect]
     Active Substance: PALBOCICLIB
     Indication: BREAST CANCER METASTATIC
     Dosage: 125 MG, 1 CAPSULE, DAYS 1-21 EVERY 28 DAYS
     Route: 048
     Dates: start: 20160109
  5. IBRANCE [Suspect]
     Active Substance: PALBOCICLIB
     Indication: BREAST CANCER FEMALE
     Dosage: UNK
  6. IBRANCE [Suspect]
     Active Substance: PALBOCICLIB
     Dosage: 125 MG, DAYS 1-21 EVERY 28 DAYS
     Route: 048

REACTIONS (15)
  - Weight decreased [Unknown]
  - Alopecia [Not Recovered/Not Resolved]
  - Cough [Not Recovered/Not Resolved]
  - Epistaxis [Unknown]
  - Ageusia [Unknown]
  - White blood cell count decreased [Unknown]
  - Gastrooesophageal reflux disease [Unknown]
  - Back pain [Recovering/Resolving]
  - Bone pain [Unknown]
  - Salivary hypersecretion [Unknown]
  - Renal disorder [Unknown]
  - Pruritus [Unknown]
  - Dyspepsia [Not Recovered/Not Resolved]
  - Abdominal tenderness [Unknown]
  - Dysgeusia [Unknown]

NARRATIVE: CASE EVENT DATE: 2016
